FAERS Safety Report 4498808-X (Version None)
Quarter: 2004Q4

REPORT INFORMATION
  Report Type: 
  Country: None (occurrence: None)
  Receive Date: 20041108
  Receipt Date: 20041020
  Transmission Date: 20050328
  Serious: Yes (Hospitalization)
  Sender: FDA-Public Use
  Company Number: A0530762A

PATIENT
  Age: 58 Year
  Sex: Female
  Weight: 65.7716 kg

DRUGS (5)
  1. NICODERM CQ [Suspect]
     Indication: SMOKING CESSATION THERAPY
     Dosage: VARIABLE DOSE/TRANSERMAL
     Route: 062
     Dates: start: 20040505
  2. COMMIT [Suspect]
     Indication: SMOKING CESSATION THERAPY
     Dosage: 2 MG/ SINGLE DOSE/TRANSBUCCAL
     Route: 002
     Dates: start: 20041001, end: 20041001
  3. WELLBUTRIN [Suspect]
     Indication: SMOKING CESSATION THERAPY
     Dosage: SEE IMAGE
     Route: 048
     Dates: start: 20040501, end: 20040501
  4. ATORVASTATIN CALCIUM [Concomitant]
  5. ALLEGRA-D [Concomitant]

REACTIONS (6)
  - DRUG INEFFECTIVE [None]
  - LUNG CARCINOMA CELL TYPE UNSPECIFIED STAGE I [None]
  - MEDICATION ERROR [None]
  - SALIVA ALTERED [None]
  - THROAT IRRITATION [None]
  - THROAT TIGHTNESS [None]
